FAERS Safety Report 7109070-3 (Version None)
Quarter: 2010Q4

REPORT INFORMATION
  Report Type: 
  Country: None (occurrence: None)
  Receive Date: 20101117
  Receipt Date: 20101108
  Transmission Date: 20110411
  Serious: Yes (Other)
  Sender: FDA-Public Use
  Company Number: NL-ABBOTT-10P-114-0663370-00

PATIENT
  Sex: Male

DRUGS (9)
  1. HUMIRA [Suspect]
     Indication: PSORIASIS
     Route: 058
     Dates: start: 20100211, end: 20100601
  2. HUMIRA [Concomitant]
     Indication: PSORIASIS
     Route: 058
     Dates: start: 20080501
  3. HYDROCHLOROTHIAZIDE [Concomitant]
     Indication: HYPERTENSION
  4. ADALAT [Concomitant]
     Indication: HYPERTENSION
     Dates: start: 20101001
  5. HYDROCORTISON [Concomitant]
     Indication: PRODUCT USED FOR UNKNOWN INDICATION
     Dosage: ONCE A DAY 2 TABLETS AND TWICE A DAY 1 TABLET
     Dates: end: 20100719
  6. METFORMIN HCL [Concomitant]
     Indication: TYPE 2 DIABETES MELLITUS
     Dates: end: 20090621
  7. DIOVAN HCT [Concomitant]
     Indication: HYPERTENSION
     Dosage: 160/12.5 MG
     Dates: start: 20100706
  8. SLOW-K [Concomitant]
     Indication: HYPOKALAEMIA
     Dates: start: 20100706
  9. DERMOVATE [Concomitant]
     Indication: PSORIASIS
     Route: 061
     Dates: start: 20100812

REACTIONS (3)
  - DYSPHAGIA [None]
  - DYSPNOEA [None]
  - THYROIDITIS FIBROUS CHRONIC [None]
